FAERS Safety Report 9988790 (Version 1)
Quarter: 2014Q1

REPORT INFORMATION
  Report Type: Spontaneous
  Country: US (occurrence: US)
  Receive Date: 20140310
  Receipt Date: 20140310
  Transmission Date: 20141002
  Serious: Yes (Life-Threatening, Hospitalization, Other)
  Sender: FDA-Public Use
  Company Number: US-ROCHE-1362021

PATIENT
  Age: 51 Year
  Sex: Male

DRUGS (6)
  1. XOLAIR [Suspect]
     Indication: ASTHMA
     Route: 058
     Dates: start: 201401, end: 20140214
  2. XOLAIR [Suspect]
     Route: 058
  3. FLUCONAZOLE [Concomitant]
  4. ZOLPIDEM [Concomitant]
     Route: 065
  5. GABAPENTIN [Concomitant]
     Route: 065
  6. HYDROXYCHLOROQUINE [Concomitant]
     Route: 065

REACTIONS (3)
  - Oedema [Recovering/Resolving]
  - Hypertension [Not Recovered/Not Resolved]
  - Influenza like illness [Recovered/Resolved]
